FAERS Safety Report 23611468 (Version 1)
Quarter: 2024Q1

REPORT INFORMATION
  Report Type: Spontaneous
  Country: US (occurrence: US)
  Receive Date: 20240308
  Receipt Date: 20240308
  Transmission Date: 20240410
  Serious: No
  Sender: FDA-Public Use
  Company Number: US-PFIZER INC-PV202400031443

PATIENT
  Age: 62 Year
  Sex: Female
  Weight: 93.44 kg

DRUGS (1)
  1. XELJANZ XR [Suspect]
     Active Substance: TOFACITINIB CITRATE
     Indication: Rheumatoid arthritis
     Dosage: 11 MG, 3X/DAY
     Route: 048

REACTIONS (2)
  - Herpes zoster [Unknown]
  - Off label use [Unknown]

NARRATIVE: CASE EVENT DATE: 20230701
